FAERS Safety Report 4538566-3 (Version None)
Quarter: 2004Q4

REPORT INFORMATION
  Report Type: 
  Country: None (occurrence: None)
  Receive Date: 20041222
  Receipt Date: 20041210
  Transmission Date: 20050328
  Serious: Yes (Hospitalization)
  Sender: FDA-Public Use
  Company Number: A02200403139

PATIENT
  Age: 63 Year
  Sex: Female

DRUGS (6)
  1. STILNOX      (ZOLPIDEM) [Suspect]
     Indication: SLEEP DISORDER
     Dosage: 15 MG OD ORAL
     Route: 048
  2. SOLU-MEDROL [Suspect]
     Dosage: 60 MG QD INTRAVENOUS NOS
     Route: 042
     Dates: start: 20030331, end: 20030331
  3. OMEPRAZOLE [Suspect]
     Dosage: 20 MG OD ORAL
     Route: 048
  4. ONDANSETRON HYDROCHLORIDE [Suspect]
     Dosage: 1 UNIT OD INTRAVENOUS NOS
     Route: 042
     Dates: start: 20030331, end: 20030331
  5. TAXOTERE [Suspect]
     Indication: CARCINOMA
     Dosage: 132 MG OTHER INTRAVENOUS NOS
     Route: 042
     Dates: start: 20030331, end: 20030331
  6. OXAZEPAM [Suspect]
     Dosage: 50 MG OD ORAL
     Route: 048

REACTIONS (1)
  - SUPRAVENTRICULAR TACHYCARDIA [None]
